FAERS Safety Report 14409032 (Version 1)
Quarter: 2018Q1

REPORT INFORMATION
  Report Type: Spontaneous
  Country: US (occurrence: US)
  Receive Date: 20180119
  Receipt Date: 20180119
  Transmission Date: 20180509
  Serious: Yes (Hospitalization)
  Sender: FDA-Public Use
  Company Number: US-ROCHE-2053018

PATIENT
  Sex: Female

DRUGS (12)
  1. PREDNISONE. [Concomitant]
     Active Substance: PREDNISONE
  2. SULFASALAZINE. [Concomitant]
     Active Substance: SULFASALAZINE
  3. HUMIRA [Suspect]
     Active Substance: ADALIMUMAB
     Indication: RHEUMATOID ARTHRITIS
     Dosage: 40 MG/0.8ML (40MG, SOL FOR INJ IN PREFILLED SYRINGE)
     Route: 058
     Dates: start: 2002
  4. HUMIRA [Suspect]
     Active Substance: ADALIMUMAB
     Indication: ANKYLOSING SPONDYLITIS
     Dosage: ONGOING: UNKNOWN
     Route: 058
     Dates: start: 2006
  5. HUMIRA [Suspect]
     Active Substance: ADALIMUMAB
     Indication: UVEITIS
     Route: 058
     Dates: end: 2012
  6. ADVIL [Concomitant]
     Active Substance: IBUPROFEN
  7. DURAGESIC [Concomitant]
     Active Substance: FENTANYL
  8. HUMIRA [Suspect]
     Active Substance: ADALIMUMAB
     Dosage: ONGOING: UNKNOWN
     Route: 058
     Dates: start: 2013
  9. RITUXAN [Suspect]
     Active Substance: RITUXIMAB
     Indication: ANKYLOSING SPONDYLITIS
     Dosage: ONGOING: UNKNOWN
     Route: 065
  10. KETOROLAC [Concomitant]
     Active Substance: KETOROLAC\KETOROLAC TROMETHAMINE
  11. HYDROMORPHONE [Concomitant]
     Active Substance: HYDROMORPHONE
  12. CELEBREX [Concomitant]
     Active Substance: CELECOXIB

REACTIONS (6)
  - Blindness [Recovering/Resolving]
  - Eye inflammation [Not Recovered/Not Resolved]
  - Intentional product use issue [Unknown]
  - Off label use [Unknown]
  - Arthritis [Recovered/Resolved]
  - Localised infection [Recovered/Resolved]

NARRATIVE: CASE EVENT DATE: 2004
